FAERS Safety Report 4797989-8 (Version None)
Quarter: 2005Q3

REPORT INFORMATION
  Report Type: 
  Country: None (occurrence: None)
  Receive Date: 20050929
  Receipt Date: 20050810
  Transmission Date: 20060218
  Serious: No
  Sender: FDA-Public Use
  Company Number: 03P-163-0230430

PATIENT
  Age: 34 Year
  Sex: Female
  Weight: 47.6277 kg

DRUGS (5)
  1. HUMIRA [Suspect]
     Indication: RHEUMATOID ARTHRITIS
     Dosage: 40 MG, 1 IN 2 WK, SUBCUTANEOUS
     Route: 058
     Dates: start: 20030101, end: 20050701
  2. LEFLUNOMIDE [Concomitant]
  3. PREDNISONE [Concomitant]
  4. TRAZODONE HCL [Concomitant]
  5. METHOTREXATE SODIUM [Concomitant]

REACTIONS (2)
  - DYSGEUSIA [None]
  - PRODUCTIVE COUGH [None]
